FAERS Safety Report 18832461 (Version 1)
Quarter: 2021Q1

REPORT INFORMATION
  Report Type: Spontaneous
  Country: US (occurrence: US)
  Receive Date: 20210203
  Receipt Date: 20210203
  Transmission Date: 20210419
  Serious: Yes (Death)
  Sender: FDA-Public Use
  Company Number: US-FARMAPROD-202012-1685

PATIENT
  Sex: Female

DRUGS (19)
  1. OXERVATE [Suspect]
     Active Substance: CENEGERMIN-BKBJ
     Indication: ULCERATIVE KERATITIS
  2. CIMETIDINE [Concomitant]
     Active Substance: CIMETIDINE
  3. PERCOCET [Concomitant]
     Active Substance: ACETAMINOPHEN\OXYCODONE HYDROCHLORIDE
     Dosage: 5 MG/ 325 MG
  4. DORZOLAMIDE/TIMOLOL [Concomitant]
     Active Substance: DORZOLAMIDE\TIMOLOL
  5. CLARITIN [Concomitant]
     Active Substance: LORATADINE
  6. OXERVATE [Suspect]
     Active Substance: CENEGERMIN-BKBJ
     Indication: NEUROTROPHIC KERATOPATHY
     Route: 047
     Dates: start: 20201110, end: 202012
  7. GABAPENTIN. [Concomitant]
     Active Substance: GABAPENTIN
  8. SERTRALINE HCL [Concomitant]
     Active Substance: SERTRALINE HYDROCHLORIDE
  9. OXERVATE [Suspect]
     Active Substance: CENEGERMIN-BKBJ
     Indication: HYPOAESTHESIA EYE
  10. SYNTHROID [Concomitant]
     Active Substance: LEVOTHYROXINE SODIUM
  11. HYDROCHLOROTHIAZIDE. [Concomitant]
     Active Substance: HYDROCHLOROTHIAZIDE
  12. MONTELUKAST SODIUM. [Concomitant]
     Active Substance: MONTELUKAST SODIUM
  13. PREDNISOLONE POWDER [Concomitant]
  14. LIPITOR [Concomitant]
     Active Substance: ATORVASTATIN CALCIUM
  15. ASPIRINE [Concomitant]
     Active Substance: ASPIRIN
  16. CALCIUM/VITAMINE D3 [Concomitant]
     Dosage: 500 MG?1000 IU
  17. MOXIFLOXACIN. [Concomitant]
     Active Substance: MOXIFLOXACIN
  18. ERYTHROMYCIN. [Concomitant]
     Active Substance: ERYTHROMYCIN
  19. ICAPS [Concomitant]
     Active Substance: MINERALS\VITAMINS
     Dosage: 3300 UNITS ?200 MG EXTENDED RELEASE TABLET

REACTIONS (3)
  - Facial pain [Unknown]
  - Death [Fatal]
  - Periorbital pain [Unknown]
